FAERS Safety Report 7718304-3 (Version None)
Quarter: 2011Q3

REPORT INFORMATION
  Report Type: 
  Country: None (occurrence: None)
  Receive Date: 20110830
  Receipt Date: 20110819
  Transmission Date: 20111222
  Serious: Yes (Other)
  Sender: FDA-Public Use
  Company Number: US-PFIZER INC-2011197808

PATIENT
  Sex: Female

DRUGS (7)
  1. SYNTHROID [Concomitant]
     Dosage: 0.125 MG, 1X/DAY (FOR 20 YEARS)
     Route: 048
  2. LETROZOLE [Concomitant]
     Dosage: UNK
     Dates: start: 20110101, end: 20110101
  3. FEMARA [Concomitant]
     Dosage: UNK
     Dates: start: 20100101
  4. FEMARA [Concomitant]
     Dosage: UNK
     Dates: start: 20100101
  5. PANTOPRAZOLE [Suspect]
     Indication: HERNIA
     Dosage: 40 MG, DAILY
     Route: 048
     Dates: start: 20101104, end: 20110726
  6. PANTOPRAZOLE [Suspect]
     Indication: DYSPEPSIA
  7. FEMARA [Concomitant]
     Indication: BREAST CANCER
     Dosage: 2.5 MG, 1X/DAY
     Dates: start: 20030101

REACTIONS (2)
  - SWELLING FACE [None]
  - OCULAR ICTERUS [None]
